FAERS Safety Report 11579070 (Version 1)
Quarter: 2015Q3

REPORT INFORMATION
  Report Type: Spontaneous
  Country: US (occurrence: US)
  Receive Date: 20150916
  Receipt Date: 20150916
  Transmission Date: 20151125
  Serious: No
  Sender: FDA-Public Use
  Company Number: US-ELI_LILLY_AND_COMPANY-US201307007338

PATIENT
  Sex: Female

DRUGS (7)
  1. HUMALOG [Suspect]
     Active Substance: INSULIN LISPRO
     Dosage: 4 U, BID
     Dates: start: 2010
  2. HUMALOG [Suspect]
     Active Substance: INSULIN LISPRO
     Dosage: UNK, EACH EVENING
     Dates: start: 2010
  3. LEVEMIR [Concomitant]
     Active Substance: INSULIN DETEMIR
  4. TYLENOL [Concomitant]
     Active Substance: ACETAMINOPHEN
  5. SIMVASTATIN. [Concomitant]
     Active Substance: SIMVASTATIN
     Dosage: 40 MG, QD
  6. ADVIL [Concomitant]
     Active Substance: IBUPROFEN
  7. HUMALOG [Suspect]
     Active Substance: INSULIN LISPRO
     Indication: DIABETES MELLITUS
     Dosage: 10 U, TID
     Dates: start: 2010

REACTIONS (1)
  - Foreign body [Unknown]
